FAERS Safety Report 7947128-7 (Version None)
Quarter: 2011Q4

REPORT INFORMATION
  Report Type: 
  Country: None (occurrence: None)
  Receive Date: 20111129
  Receipt Date: 20111115
  Transmission Date: 20120403
  Serious: Yes (Hospitalization)
  Sender: FDA-Public Use
  Company Number: US-ASTRAZENECA-2011SE69500

PATIENT
  Age: 39 Year
  Sex: Male
  Weight: 124.7 kg

DRUGS (2)
  1. CARAFATE [Concomitant]
  2. NEXIUM [Suspect]
     Indication: GASTRITIS
     Route: 048

REACTIONS (5)
  - DYSPNOEA [None]
  - OFF LABEL USE [None]
  - HEART RATE IRREGULAR [None]
  - CHEST DISCOMFORT [None]
  - DIZZINESS [None]
